FAERS Safety Report 6852688-3 (Version None)
Quarter: 2010Q3

REPORT INFORMATION
  Report Type: 
  Country: None (occurrence: None)
  Receive Date: 20100717
  Receipt Date: 20071118
  Transmission Date: 20110219
  Serious: No
  Sender: FDA-Public Use
  Company Number: US-PFIZER INC-2007099364

PATIENT
  Sex: Female
  Weight: 49.09 kg

DRUGS (5)
  1. CHANTIX [Suspect]
     Indication: SMOKING CESSATION THERAPY
     Dates: start: 20071113
  2. OXYCODONE HCL [Concomitant]
  3. TRAMADOL [Concomitant]
     Indication: FIBROMYALGIA
  4. TRAMADOL [Concomitant]
     Indication: ARTHRITIS
  5. LAMICTAL [Concomitant]
     Indication: BIPOLAR DISORDER

REACTIONS (3)
  - DECREASED APPETITE [None]
  - INSOMNIA [None]
  - PRURITUS GENERALISED [None]
